APPROVED DRUG PRODUCT: LITHIUM CITRATE
Active Ingredient: LITHIUM CITRATE
Strength: EQ 300MG CARBONATE/5ML
Dosage Form/Route: SYRUP;ORAL
Application: A070755 | Product #001
Applicant: PAI HOLDINGS LLC DBA PHARMACEUTICAL ASSOCIATES INC
Approved: May 21, 1986 | RLD: No | RS: No | Type: DISCN